FAERS Safety Report 7417262-9 (Version None)
Quarter: 2011Q2

REPORT INFORMATION
  Report Type: 
  Country: None (occurrence: None)
  Receive Date: 20110415
  Receipt Date: 20110404
  Transmission Date: 20111010
  Serious: Yes (Other)
  Sender: FDA-Public Use
  Company Number: JP-KINGPHARMUSA00001-K201100406

PATIENT
  Age: 73 Year
  Sex: Female

DRUGS (1)
  1. AVINZA [Suspect]
     Indication: PAIN
     Dosage: UNK
     Route: 048

REACTIONS (1)
  - DERMATITIS EXFOLIATIVE [None]
